FAERS Safety Report 10063346 (Version 3)
Quarter: 2014Q2

REPORT INFORMATION
  Report Type: Spontaneous
  Country: DE (occurrence: DE)
  Receive Date: 20140407
  Receipt Date: 20140620
  Transmission Date: 20141212
  Serious: Yes (Other)
  Sender: FDA-Public Use
  Company Number: DE-B.I. PHARMACEUTICALS,INC./RIDGEFIELD-2014-BI-15218BY

PATIENT
  Age: 63 Year
  Sex: Female

DRUGS (1)
  1. PRITOR PLUS [Suspect]
     Indication: PRODUCT USED FOR UNKNOWN INDICATION
     Dosage: DAILY DOSE 1 DF, 80 MG/25 MG
     Route: 048
     Dates: start: 20140215, end: 20140218

REACTIONS (4)
  - Blood pressure systolic increased [Unknown]
  - Feeling abnormal [Unknown]
  - Dizziness [Unknown]
  - Drug ineffective [Unknown]
